FAERS Safety Report 10199527 (Version 1)
Quarter: 2014Q2

REPORT INFORMATION
  Report Type: Spontaneous
  Country: US (occurrence: None)
  Receive Date: 20140523
  Receipt Date: 20140523
  Transmission Date: 20141212
  Serious: Yes (Life-Threatening)
  Sender: FDA-Public Use
  Company Number: None

PATIENT
  Age: 37 Year
  Sex: Female
  Weight: 68.04 kg

DRUGS (1)
  1. WELLBUTRIN [Suspect]
     Indication: ANXIETY
     Route: 048
     Dates: start: 20071001, end: 20080501

REACTIONS (3)
  - Anger [None]
  - Aggression [None]
  - Therapy cessation [None]
